FAERS Safety Report 22182146 (Version 9)
Quarter: 2023Q4

REPORT INFORMATION
  Report Type: Report from Study
  Country: US (occurrence: US)
  Receive Date: 20230406
  Receipt Date: 20231006
  Transmission Date: 20240110
  Serious: Yes (Other)
  Sender: FDA-Public Use
  Company Number: US-002147023-NVSC2023US080379

PATIENT
  Sex: Male

DRUGS (2)
  1. ENTRESTO [Suspect]
     Active Substance: SACUBITRIL\VALSARTAN
     Indication: Cardiac failure
     Dosage: 1 DOSAGE FORM, BID
     Route: 065
     Dates: start: 2020
  2. ENTRESTO [Suspect]
     Active Substance: SACUBITRIL\VALSARTAN
     Dosage: 1.5 DOSAGE FORM (1/2 TAB IN THE MORNING AND FULL TAB AT NIGHT)
     Route: 065

REACTIONS (6)
  - Arrhythmia [Unknown]
  - Hypotension [Recovered/Resolved]
  - Malaise [Recovering/Resolving]
  - Drug intolerance [Unknown]
  - Memory impairment [Unknown]
  - Wrong technique in product usage process [Not Recovered/Not Resolved]
